FAERS Safety Report 21736013 (Version 1)
Quarter: 2022Q4

REPORT INFORMATION
  Report Type: Spontaneous
  Country: US (occurrence: US)
  Receive Date: 20221215
  Receipt Date: 20221215
  Transmission Date: 20230113
  Serious: No
  Sender: FDA-Public Use
  Company Number: US-NOVOPROD-879733

PATIENT
  Age: 58 Year
  Sex: Male

DRUGS (2)
  1. LEVEMIR [Suspect]
     Active Substance: INSULIN DETEMIR
     Indication: Product used for unknown indication
     Dosage: 30 UNITS
     Route: 058
     Dates: start: 2020
  2. LEVEMIR [Suspect]
     Active Substance: INSULIN DETEMIR
     Dosage: 36-37 UNITS
     Route: 058
     Dates: start: 2021

REACTIONS (3)
  - Panic reaction [Unknown]
  - Blood glucose increased [Not Recovered/Not Resolved]
  - Product storage error [Unknown]

NARRATIVE: CASE EVENT DATE: 20211101
